FAERS Safety Report 6581364-X (Version None)
Quarter: 2010Q1

REPORT INFORMATION
  Report Type: 
  Country: None (occurrence: None)
  Receive Date: 20100215
  Receipt Date: 20100202
  Transmission Date: 20100710
  Serious: Yes (Hospitalization)
  Sender: FDA-Public Use
  Company Number: US-JNJFOC-20100202042

PATIENT
  Age: 34 Year
  Sex: Female
  Weight: 108.86 kg

DRUGS (3)
  1. INVEGA SUSTENNA [Suspect]
     Indication: SCHIZOPHRENIA
     Route: 030
  2. INVEGA SUSTENNA [Suspect]
     Route: 030
  3. TRILEPTAL [Concomitant]
     Indication: DRUG THERAPY
     Route: 048

REACTIONS (2)
  - HALLUCINATION [None]
  - HYPONATRAEMIA [None]
